FAERS Safety Report 24024122 (Version 1)
Quarter: 2024Q2

REPORT INFORMATION
  Report Type: Report from Study
  Country: US (occurrence: US)
  Receive Date: 20240627
  Receipt Date: 20240627
  Transmission Date: 20240717
  Serious: No
  Sender: FDA-Public Use
  Company Number: US-ROCHE-3466579

PATIENT
  Age: 58 Year
  Sex: Female

DRUGS (10)
  1. PHESGO [Suspect]
     Active Substance: HYALURONIDASE-ZZXF\PERTUZUMAB\TRASTUZUMAB
     Indication: Breast cancer female
     Dosage: FREQUENCY TEXT:ONCE
     Route: 058
     Dates: end: 20231024
  2. TAXOTERE [Concomitant]
     Active Substance: DOCETAXEL
  3. CARBOPLATIN [Concomitant]
     Active Substance: CARBOPLATIN
  4. AKYNZEO [Concomitant]
  5. EPINEPHRINE [Concomitant]
     Active Substance: EPINEPHRINE
  6. DIPHENHYDRAMINE HYDROCHLORIDE [Concomitant]
     Active Substance: DIPHENHYDRAMINE HYDROCHLORIDE
  7. FAMOTIDINE [Concomitant]
     Active Substance: FAMOTIDINE
  8. HYDROCORTISONE [Concomitant]
     Active Substance: HYDROCORTISONE\HYDROCORTISONE ACETATE
  9. METHYLPREDNISOLONE [Concomitant]
     Active Substance: METHYLPREDNISOLONE
  10. FULPHILA [Concomitant]
     Active Substance: PEGFILGRASTIM-JMDB

REACTIONS (1)
  - Visual impairment [Not Recovered/Not Resolved]
